FAERS Safety Report 6828656-4 (Version None)
Quarter: 2010Q3

REPORT INFORMATION
  Report Type: 
  Country: None (occurrence: None)
  Receive Date: 20100709
  Receipt Date: 20070215
  Transmission Date: 20110219
  Serious: No
  Sender: FDA-Public Use
  Company Number: US-PFIZER INC-2007013865

PATIENT
  Sex: Female
  Weight: 71.67 kg

DRUGS (5)
  1. CHANTIX [Suspect]
     Indication: SMOKING CESSATION THERAPY
     Route: 048
     Dates: start: 20070122
  2. ZYPREXA [Concomitant]
  3. WELLBUTRIN [Concomitant]
  4. LUNESTA [Concomitant]
     Indication: INSOMNIA
  5. COMMIT [Concomitant]
     Indication: SMOKING CESSATION THERAPY

REACTIONS (7)
  - ABDOMINAL PAIN [None]
  - DIARRHOEA [None]
  - DRUG INEFFECTIVE [None]
  - FLATULENCE [None]
  - INFLUENZA [None]
  - NAUSEA [None]
  - VOMITING [None]
